FAERS Safety Report 8981369 (Version 1)
Quarter: 2012Q4

REPORT INFORMATION
  Report Type: 
  Country: US (occurrence: US)
  Receive Date: 20121221
  Receipt Date: 20121221
  Transmission Date: 20130627
  Serious: No
  Sender: FDA-Public Use
  Company Number: US-PFIZER INC-2012321385

PATIENT
  Age: 81 Year
  Sex: Male

DRUGS (6)
  1. ROBITUSSIN PEAK COLD SUGAR-FREE COUGH PLUS CHEST CONGESTION DM [Suspect]
     Indication: COLD
     Dosage: UNK, daily
     Dates: start: 20121215
  2. ROBITUSSIN PEAK COLD SUGAR-FREE COUGH PLUS CHEST CONGESTION DM [Suspect]
     Indication: NASAL DISORDER
  3. ROBITUSSIN PEAK COLD SUGAR-FREE COUGH PLUS CHEST CONGESTION DM [Suspect]
     Indication: COUGH
  4. AZITHROMYCIN [Suspect]
     Indication: COLD
     Dosage: UNK, daily
     Dates: start: 20121216
  5. AZITHROMYCIN [Suspect]
     Indication: NASAL DISORDER
  6. AZITHROMYCIN [Suspect]
     Indication: COUGH

REACTIONS (2)
  - Constipation [Unknown]
  - Decreased appetite [Unknown]
